FAERS Safety Report 16410759 (Version 4)
Quarter: 2019Q3

REPORT INFORMATION
  Report Type: Spontaneous
  Country: NL (occurrence: NL)
  Receive Date: 20190610
  Receipt Date: 20190917
  Transmission Date: 20191004
  Serious: Yes (Other)
  Sender: FDA-Public Use
  Company Number: PHHY2019NL126758

PATIENT
  Age: 50 Year
  Sex: Male

DRUGS (11)
  1. GEMCITABINE. [Suspect]
     Active Substance: GEMCITABINE
     Indication: CUTANEOUS T-CELL LYMPHOMA
     Route: 065
  2. GEMCITABINE. [Suspect]
     Active Substance: GEMCITABINE
     Indication: CUTANEOUS T-CELL LYMPHOMA
  3. DOXORUBICIN [Suspect]
     Active Substance: DOXORUBICIN
     Indication: CUTANEOUS T-CELL LYMPHOMA
     Route: 065
  4. BRENTUXIMAB [Suspect]
     Active Substance: BRENTUXIMAB VEDOTIN
     Indication: CUTANEOUS T-CELL LYMPHOMA
     Route: 065
  5. VINCRISTINE [Suspect]
     Active Substance: VINCRISTINE
     Indication: CUTANEOUS T-CELL LYMPHOMA
     Route: 065
  6. CYCLOPHOSPHAMIDE. [Suspect]
     Active Substance: CYCLOPHOSPHAMIDE
     Indication: CUTANEOUS T-CELL LYMPHOMA
     Route: 065
  7. DOXORUBICIN [Suspect]
     Active Substance: DOXORUBICIN
     Indication: CUTANEOUS T-CELL LYMPHOMA
  8. VINCRISTINE [Suspect]
     Active Substance: VINCRISTINE
     Indication: CUTANEOUS T-CELL LYMPHOMA
  9. PREDNISOLONE. [Suspect]
     Active Substance: PREDNISOLONE
     Indication: CUTANEOUS T-CELL LYMPHOMA
     Route: 065
  10. GEMCITABINE. [Suspect]
     Active Substance: GEMCITABINE
     Indication: MOLLUSCUM CONTAGIOSUM
  11. IMIQUIMOD. [Suspect]
     Active Substance: IMIQUIMOD
     Indication: MOLLUSCUM CONTAGIOSUM
     Route: 061

REACTIONS (10)
  - Cutaneous T-cell lymphoma refractory [Unknown]
  - Lymphadenopathy [Unknown]
  - Malignant neoplasm progression [Unknown]
  - Skin plaque [Recovered/Resolved]
  - White blood cell count increased [Recovering/Resolving]
  - Pruritus [Recovered/Resolved]
  - Lymphocyte count increased [Recovering/Resolving]
  - Molluscum contagiosum [Recovered/Resolved]
  - Dermatitis exfoliative generalised [Recovering/Resolving]
  - Drug ineffective [Unknown]
